FAERS Safety Report 7026566-3 (Version None)
Quarter: 2010Q3

REPORT INFORMATION
  Report Type: 
  Country: None (occurrence: None)
  Receive Date: 20100929
  Receipt Date: 20100923
  Transmission Date: 20110219
  Serious: Yes (Hospitalization)
  Sender: FDA-Public Use
  Company Number: 2010SP050928

PATIENT
  Age: 32 Year
  Sex: Female

DRUGS (11)
  1. ORGARAN [Suspect]
     Dosage: SC
     Route: 058
     Dates: start: 20100818, end: 20100820
  2. FUROSEMIDE [Suspect]
     Dosage: IV
     Route: 042
     Dates: start: 20100820
  3. SOLU-MEDROL [Suspect]
     Dates: start: 20100820, end: 20100825
  4. DIPRIVAN [Suspect]
     Indication: PRODUCT USED FOR UNKNOWN INDICATION
     Dosage: IV
     Route: 042
     Dates: start: 20100822, end: 20100823
  5. AUGMENTIN '125' [Suspect]
     Indication: PRODUCT USED FOR UNKNOWN INDICATION
     Dosage: IV
     Route: 042
     Dates: start: 20100818, end: 20100823
  6. CLAFORAN [Suspect]
     Indication: PRODUCT USED FOR UNKNOWN INDICATION
     Dosage: IV
     Route: 042
     Dates: start: 20100823, end: 20100825
  7. PANTOPRAZOLE [Suspect]
     Indication: PRODUCT USED FOR UNKNOWN INDICATION
     Dosage: IV
     Route: 042
     Dates: start: 20100818, end: 20100824
  8. FENTANYL-100 [Suspect]
     Indication: PRODUCT USED FOR UNKNOWN INDICATION
     Dosage: IV
     Route: 042
     Dates: start: 20100819, end: 20100822
  9. MIDAZOLAM HCL [Suspect]
     Indication: PRODUCT USED FOR UNKNOWN INDICATION
     Dosage: IV
     Route: 042
     Dates: start: 20100818, end: 20100822
  10. LOVENOX [Suspect]
     Indication: PRODUCT USED FOR UNKNOWN INDICATION
     Dosage: SC
     Route: 058
     Dates: start: 20100820, end: 20100826
  11. TRANXENE [Suspect]
     Indication: PRODUCT USED FOR UNKNOWN INDICATION
     Dosage: IV
     Route: 042
     Dates: start: 20100822, end: 20100825

REACTIONS (5)
  - ALANINE AMINOTRANSFERASE INCREASED [None]
  - ANAPHYLACTOID SHOCK [None]
  - ASPARTATE AMINOTRANSFERASE INCREASED [None]
  - CARDIOGENIC SHOCK [None]
  - PANCREATITIS [None]
